FAERS Safety Report 24659787 (Version 1)
Quarter: 2024Q4

REPORT INFORMATION
  Report Type: Spontaneous
  Country: FR (occurrence: FR)
  Receive Date: 20241125
  Receipt Date: 20241125
  Transmission Date: 20250115
  Serious: Yes (Life-Threatening, Other)
  Sender: ANI
  Company Number: FR-ANIPHARMA-2024-FR-000202

PATIENT
  Age: 87 Year
  Sex: Male
  Weight: 71 kg

DRUGS (15)
  1. CANDESARTAN CILEXETIL [Suspect]
     Active Substance: CANDESARTAN CILEXETIL
     Indication: Hypertension
     Dosage: 16 MILLIGRAM, 1/DAY
     Route: 048
     Dates: end: 202410
  2. HERBALS\SAW PALMETTO [Suspect]
     Active Substance: HERBALS\SAW PALMETTO
     Dosage: 2 DOSAGE FORM, 1/DAY
     Route: 048
  3. METOCLOPRAMIDE [Suspect]
     Active Substance: METOCLOPRAMIDE
     Dosage: 1 DOSAGE FORM;
     Route: 048
     Dates: end: 202410
  4. CHOLECALCIFEROL [Suspect]
     Active Substance: CHOLECALCIFEROL
     Dosage: 1 DOSAGE FORM, 1/MONTH
     Route: 048
  5. TAMSULOSIN [Suspect]
     Active Substance: TAMSULOSIN
     Dosage: 0.4 MILLIGRAM, 1/DAY
     Route: 048
  6. MONTMORILLONITE [Suspect]
     Active Substance: MONTMORILLONITE
     Dosage: 1 DOSAGE FORM;
     Route: 048
     Dates: end: 202410
  7. LOPERAMIDE HYDROCHLORIDE [Suspect]
     Active Substance: LOPERAMIDE HYDROCHLORIDE
     Dosage: 1 DOSAGE FORM
     Route: 048
     Dates: end: 202410
  8. ESOMEPRAZOLE SODIUM [Suspect]
     Active Substance: ESOMEPRAZOLE SODIUM
     Dosage: 20 MILLIGRAM
     Route: 048
     Dates: end: 202410
  9. PLUVICTO [Suspect]
     Active Substance: LUTETIUM LU-177 VIPIVOTIDE TETRAXETAN
     Dosage: 7042 MEGABECQUEREL, EVERY 6 WEEKS
     Dates: start: 20240723, end: 20240903
  10. KARDEGIC [Suspect]
     Active Substance: ASPIRIN DL-LYSINE
     Dosage: 75 MILLIGRAM, 1/DAY
     Route: 048
     Dates: end: 202410
  11. SERETIDE [Suspect]
     Active Substance: FLUTICASONE PROPIONATE\SALMETEROL XINAFOATE
     Dosage: 2 DOSAGE FORM, 1/DAY
     Route: 055
  12. HYDROCHLOROTHIAZIDE [Suspect]
     Active Substance: HYDROCHLOROTHIAZIDE
     Dosage: 12.5 MILLIGRAM, 1/DAY
     Route: 048
     Dates: end: 202410
  13. RILMENIDINE [Suspect]
     Active Substance: RILMENIDINE
     Dosage: 2 MILLIGRAM, 1/DAY
     Route: 048
     Dates: end: 202410
  14. IBUPROFEN [Suspect]
     Active Substance: IBUPROFEN
     Dosage: 3 DOSAGE FORM, 1/DAY
     Route: 050
     Dates: end: 202410
  15. ACETAMINOPHEN [Suspect]
     Active Substance: ACETAMINOPHEN
     Dosage: 1 GRAM
     Route: 048

REACTIONS (1)
  - Acquired haemophilia [Unknown]

NARRATIVE: CASE EVENT DATE: 20240930
